FAERS Safety Report 4542921-5 (Version None)
Quarter: 2004Q4

REPORT INFORMATION
  Report Type: 
  Country: None (occurrence: None)
  Receive Date: 20041229
  Receipt Date: 20041216
  Transmission Date: 20050328
  Serious: Yes (Hospitalization)
  Sender: FDA-Public Use
  Company Number: 2004117696

PATIENT
  Age: 92 Year
  Sex: Female
  Weight: 50.8029 kg

DRUGS (11)
  1. LINEZOLID TABLET (LINEZOLID) [Suspect]
     Indication: STAPHYLOCOCCAL INFECTION
     Dosage: 1200 MG (600 MG, 1 IN 12 HR), ORAL
     Route: 048
     Dates: start: 20041101, end: 20041201
  2. ATENOLOL [Concomitant]
  3. ENALAPRIL MALEATE [Concomitant]
  4. AMLODIPINE BESYLATE [Concomitant]
  5. LANSOPRAZOLE [Concomitant]
  6. DIGOXIN [Concomitant]
  7. DOCUSATE SODIUM (DOCUSATE SODIUM) [Concomitant]
  8. MULTIVITAMINS (ASCORBIC ACID/ERGOCALCIFEROL/FOLIC ACID/NICOTINAMIDE/PA [Concomitant]
  9. FUROSEMIDE [Concomitant]
  10. WARFARIN SODIUM [Concomitant]
  11. ANTIBIOTICS (ANTIBIOTICS) [Concomitant]

REACTIONS (14)
  - ABDOMINAL DISTENSION [None]
  - AGEUSIA [None]
  - ASTHENIA [None]
  - CLOSTRIDIUM COLITIS [None]
  - COAGULATION TEST ABNORMAL [None]
  - COUGH [None]
  - DIARRHOEA [None]
  - HAEMATOCHEZIA [None]
  - HAEMATOCRIT DECREASED [None]
  - MARKEDLY REDUCED DIETARY INTAKE [None]
  - MUSCLE CRAMP [None]
  - NAUSEA [None]
  - RETCHING [None]
  - WEIGHT DECREASED [None]
